FAERS Safety Report 19752490 (Version 3)
Quarter: 2021Q4

REPORT INFORMATION
  Report Type: Spontaneous
  Country: US (occurrence: US)
  Receive Date: 20210827
  Receipt Date: 20211002
  Transmission Date: 20220304
  Serious: No
  Sender: FDA-Public Use
  Company Number: US-JNJFOC-20210828811

PATIENT
  Age: 37 Year
  Sex: Male

DRUGS (1)
  1. MENS ROGAINE EXTRA STRENGTH [Suspect]
     Active Substance: MINOXIDIL
     Indication: Alopecia
     Dosage: 1 1/2 CAPFUL TWICE A DAY
     Route: 061
     Dates: start: 20210802

REACTIONS (5)
  - Eye irritation [Unknown]
  - Product physical consistency issue [Unknown]
  - Poor quality product administered [Unknown]
  - Overdose [Unknown]
  - Accidental exposure to product [Unknown]

NARRATIVE: CASE EVENT DATE: 20210802
